FAERS Safety Report 6414753-4 (Version None)
Quarter: 2009Q4

REPORT INFORMATION
  Report Type: 
  Country: None (occurrence: None)
  Receive Date: 20091026
  Receipt Date: 20091026
  Transmission Date: 20100525
  Serious: Yes (Disabling, Other)
  Sender: FDA-Public Use
  Company Number: None

PATIENT
  Sex: Female
  Weight: 53.978 kg

DRUGS (1)
  1. THYROID TAB [Suspect]
     Indication: HYPOTHYROIDISM
     Dosage: 3 PILLS PER DAY PO   A FEW MONTHS
     Route: 048

REACTIONS (5)
  - BASEDOW'S DISEASE [None]
  - DIPLOPIA [None]
  - EXOPHTHALMOS [None]
  - INSOMNIA [None]
  - TEMPERATURE INTOLERANCE [None]
